FAERS Safety Report 7843256-5 (Version None)
Quarter: 2011Q4

REPORT INFORMATION
  Report Type: 
  Country: None (occurrence: None)
  Receive Date: 20111025
  Receipt Date: 20111020
  Transmission Date: 20120403
  Serious: No
  Sender: FDA-Public Use
  Company Number: US-PFIZER INC-2011254109

PATIENT
  Age: 55 Year
  Sex: Male

DRUGS (1)
  1. NEURONTIN [Suspect]
     Dosage: 2 MG OR LESS, MAYBE ONCE OR TWICE A WEEK

REACTIONS (3)
  - DISCOMFORT [None]
  - VISION BLURRED [None]
  - FEELING ABNORMAL [None]
